FAERS Safety Report 21175926 (Version 1)
Quarter: 2022Q3

REPORT INFORMATION
  Report Type: Spontaneous
  Country: US (occurrence: None)
  Receive Date: 20220804
  Receipt Date: 20220804
  Transmission Date: 20221026
  Serious: Yes (Other)
  Sender: FDA-Public Use
  Company Number: None

PATIENT
  Sex: Female

DRUGS (18)
  1. ESTRADIOL [Suspect]
     Active Substance: ESTRADIOL
     Indication: Product used for unknown indication
     Dosage: 0.1MG/24HR? ?APPLY 1 PATCH TOPICALLY AND CHANGE EVERY 3 DAYS AS DIRECTED
     Route: 062
     Dates: start: 20220525
  2. ESTRADIOL [Suspect]
     Active Substance: ESTRADIOL
     Dosage: OTHER QUANTITY : 1 PATCH;?FREQUENCY : AS DIRECTED;?
     Route: 061
  3. AMOXICILLIN [Concomitant]
     Active Substance: AMOXICILLIN
  4. ASPIRIN [Concomitant]
  5. CETROTIDE [Concomitant]
     Active Substance: CETRORELIX ACETATE
  6. ENOXAPARIN [Concomitant]
     Active Substance: ENOXAPARIN
  7. FLUCONAZOLE [Concomitant]
     Active Substance: FLUCONAZOLE
  8. GONAL-F REFF [Concomitant]
  9. LLEUPROLIDE [Concomitant]
  10. LUPRON DEPOT [Concomitant]
     Active Substance: LEUPROLIDE ACETATE
  11. MEDROXYPRAC [Concomitant]
  12. MENOPUR [Concomitant]
     Active Substance: FOLLITROPIN\LUTEINIZING HORMONE
  13. METFORMIN [Concomitant]
     Active Substance: METFORMIN HYDROCHLORIDE
  14. METHYLPREDNISOLONE [Concomitant]
     Active Substance: METHYLPREDNISOLONE
  15. NORETHIN ACE [Concomitant]
  16. NOVOLOG [Concomitant]
  17. OZEMPIC [Concomitant]
     Active Substance: SEMAGLUTIDE
  18. PROGESTERONE [Concomitant]
     Active Substance: PROGESTERONE

REACTIONS (2)
  - Pregnancy [None]
  - Exposure during pregnancy [None]
